FAERS Safety Report 5726086-X (Version None)
Quarter: 2008Q2

REPORT INFORMATION
  Report Type: 
  Country: None (occurrence: None)
  Receive Date: 20080501
  Receipt Date: 20080501
  Transmission Date: 20081010
  Serious: Yes (Life-Threatening, Hospitalization)
  Sender: FDA-Public Use
  Company Number: None

PATIENT
  Age: 81 Year
  Sex: Female
  Weight: 66.6788 kg

DRUGS (1)
  1. DIGITEK  0.125 MG  BERTEK [Suspect]
     Indication: CARDIAC FAILURE CONGESTIVE
     Dosage: 1 DAILY PO
     Route: 048
     Dates: start: 20071205, end: 20080305

REACTIONS (3)
  - DEHYDRATION [None]
  - NAUSEA [None]
  - RENAL IMPAIRMENT [None]
